FAERS Safety Report 8167590-7 (Version None)
Quarter: 2012Q1

REPORT INFORMATION
  Report Type: 
  Country: None (occurrence: None)
  Receive Date: 20120227
  Receipt Date: 20120222
  Transmission Date: 20120608
  Serious: Yes (Other)
  Sender: FDA-Public Use
  Company Number: IT-ROCHE-1040144

PATIENT
  Sex: Male

DRUGS (12)
  1. ACETAMINOPHEN [Concomitant]
     Dates: start: 20111229, end: 20111229
  2. METHYLPREDNISOLONE [Concomitant]
     Route: 042
     Dates: start: 20111229, end: 20111229
  3. FLUDARABINE PHOSPHATE [Suspect]
     Indication: CHRONIC LYMPHOCYTIC LEUKAEMIA
     Route: 041
     Dates: end: 20111230
  4. ZOFRAN [Concomitant]
     Route: 040
     Dates: start: 20111228, end: 20111230
  5. CYCLOPHOSPHAMIDE [Suspect]
     Indication: CHRONIC LYMPHOCYTIC LEUKAEMIA
     Route: 042
     Dates: end: 20111230
  6. TRIMETON [Concomitant]
     Route: 040
  7. LYRICA [Concomitant]
     Route: 048
     Dates: start: 20111102, end: 20111230
  8. ALLOPURINOL [Concomitant]
     Route: 048
     Dates: start: 20111102, end: 20111230
  9. OMEPRAZOLE [Concomitant]
     Route: 048
     Dates: start: 20111102, end: 20111230
  10. HYDROCORTISONE [Concomitant]
     Route: 042
     Dates: start: 20111229, end: 20111229
  11. RITUXAN [Suspect]
     Indication: CHRONIC LYMPHOCYTIC LEUKAEMIA
     Route: 042
     Dates: start: 20111014, end: 20111229
  12. ACYCLOVIR [Concomitant]
     Route: 048
     Dates: start: 20111102, end: 20111230

REACTIONS (3)
  - RASH [None]
  - FEBRILE NEUTROPENIA [None]
  - HYPERPYREXIA [None]
